FAERS Safety Report 8064924-9 (Version None)
Quarter: 2012Q1

REPORT INFORMATION
  Report Type: 
  Country: None (occurrence: None)
  Receive Date: 20120124
  Receipt Date: 20120113
  Transmission Date: 20120608
  Serious: No
  Sender: FDA-Public Use
  Company Number: US-BIOGENIDEC-2012BI001805

PATIENT
  Sex: Female

DRUGS (5)
  1. TYSABRI [Suspect]
     Indication: MULTIPLE SCLEROSIS
     Route: 042
     Dates: start: 20061121
  2. TYSABRI [Suspect]
     Route: 042
  3. AVONEX [Concomitant]
     Route: 030
  4. TYSABRI [Suspect]
     Route: 042
     Dates: end: 20101101
  5. AVONEX [Concomitant]
     Indication: MULTIPLE SCLEROSIS
     Route: 030
     Dates: start: 20031105

REACTIONS (1)
  - MULTIPLE SCLEROSIS RELAPSE [None]
